FAERS Safety Report 5712858-4 (Version None)
Quarter: 2008Q2

REPORT INFORMATION
  Report Type: 
  Country: None (occurrence: None)
  Receive Date: 20080422
  Receipt Date: 20080418
  Transmission Date: 20081010
  Serious: Yes (Hospitalization)
  Sender: FDA-Public Use
  Company Number: B0511992A

PATIENT
  Age: 7 Day
  Sex: Female
  Weight: 3.5 kg

DRUGS (6)
  1. PAXIL [Suspect]
     Indication: PANIC DISORDER
     Dates: end: 20080221
  2. PAXIL [Suspect]
     Dates: start: 20080222, end: 20080304
  3. SOLANAX [Suspect]
     Indication: PANIC DISORDER
     Dates: end: 20080221
  4. SOLANAX [Suspect]
     Dates: start: 20080222, end: 20080304
  5. LEXOTAN [Suspect]
     Indication: PANIC DISORDER
     Dates: end: 20080221
  6. LEXOTAN [Suspect]
     Dates: start: 20080222, end: 20080304

REACTIONS (6)
  - DRUG EXPOSURE DURING PREGNANCY [None]
  - DRUG EXPOSURE VIA BREAST MILK [None]
  - DRUG WITHDRAWAL SYNDROME NEONATAL [None]
  - DYSKINESIA [None]
  - MUSCLE TWITCHING [None]
  - MYOCLONUS [None]
